FAERS Safety Report 21718517 (Version 1)
Quarter: 2022Q4

REPORT INFORMATION
  Report Type: Spontaneous
  Country: ES (occurrence: ES)
  Receive Date: 20221212
  Receipt Date: 20221212
  Transmission Date: 20230113
  Serious: Yes (Death, Other)
  Sender: FDA-Public Use
  Company Number: ES-STRIDES ARCOLAB LIMITED-2022SP016576

PATIENT
  Sex: Male

DRUGS (15)
  1. PREDNISOLONE [Suspect]
     Active Substance: PREDNISOLONE
     Indication: B precursor type acute leukaemia
     Dosage: UNK (PETHEMA REGIMEN; FIRST-LINE TREATMENT)
     Route: 065
  2. METHOTREXATE [Suspect]
     Active Substance: METHOTREXATE
     Indication: Acute lymphocytic leukaemia
     Dosage: UNK (PETHEMA REGIMEN; FIRST-LINE TREATMENT)
     Route: 065
  3. HYDROCORTISONE [Suspect]
     Active Substance: HYDROCORTISONE
     Indication: Acute lymphocytic leukaemia
     Dosage: UNK (PETHEMA REGIMEN; FIRST-LINE TREATMENT)
     Route: 065
  4. DEXAMETHASONE [Suspect]
     Active Substance: DEXAMETHASONE
     Indication: Acute lymphocytic leukaemia
     Dosage: UNK (PETHEMA REGIMEN; FIRST-LINE TREATMENT)
     Route: 065
  5. ETOPOSIDE [Suspect]
     Active Substance: ETOPOSIDE
     Indication: Haemophagocytic lymphohistiocytosis
     Dosage: UNK
     Route: 065
  6. DAUNORUBICIN [Suspect]
     Active Substance: DAUNORUBICIN
     Indication: B precursor type acute leukaemia
     Dosage: UNK (PETHEMA REGIMEN; FIRST-LINE TREATMENT)
     Route: 065
  7. VINCRISTINE [Suspect]
     Active Substance: VINCRISTINE
     Indication: B precursor type acute leukaemia
     Dosage: UNK (PETHEMA REGIMEN; FIRST-LINE TREATMENT)
     Route: 065
  8. ASPARAGINASE [Suspect]
     Active Substance: ASPARAGINASE
     Indication: B precursor type acute leukaemia
     Dosage: UNK (PETHEMA REGIMEN; FIRST-LINE TREATMENT)
     Route: 065
  9. CYTARABINE [Suspect]
     Active Substance: CYTARABINE
     Indication: B precursor type acute leukaemia
     Dosage: UNK (PETHEMA REGIMEN; FIRST-LINE TREATMENT)
     Route: 065
  10. CYCLOPHOSPHAMIDE [Suspect]
     Active Substance: CYCLOPHOSPHAMIDE
     Indication: B precursor type acute leukaemia
     Dosage: UNK(PETHEMA REGIMEN; FIRST-LINE TREATMENT)
     Route: 065
  11. CYCLOPHOSPHAMIDE [Suspect]
     Active Substance: CYCLOPHOSPHAMIDE
     Indication: Lymphodepletion
     Dosage: UNK (AS PART OF LYMPHODEPLETION THERAPY)
     Route: 065
  12. MERCAPTOPURINE [Suspect]
     Active Substance: MERCAPTOPURINE
     Indication: B precursor type acute leukaemia
     Dosage: UNK (PETHEMA REGIMEN; FIRST-LINE TREATMENT)
     Route: 065
  13. TENIPOSIDE [Suspect]
     Active Substance: TENIPOSIDE
     Indication: B precursor type acute leukaemia
     Dosage: UNK (PETHEMA REGIMEN; FIRST-LINE TREATMENT)
     Route: 065
  14. INOTUZUMAB OZOGAMICIN [Suspect]
     Active Substance: INOTUZUMAB OZOGAMICIN
     Indication: Acute lymphocytic leukaemia
     Dosage: UNK (THIRD-LINE TREATMENT )
     Route: 065
  15. BLINATUMOMAB [Suspect]
     Active Substance: BLINATUMOMAB
     Indication: Acute lymphocytic leukaemia
     Dosage: UNK (SECOND-LINE TREATMENT)
     Route: 065

REACTIONS (3)
  - Drug ineffective [Fatal]
  - Infection [Unknown]
  - Off label use [Unknown]
